FAERS Safety Report 26195720 (Version 1)
Quarter: 2025Q4

REPORT INFORMATION
  Report Type: Report from Study
  Country: MX (occurrence: MX)
  Receive Date: 20251224
  Receipt Date: 20251224
  Transmission Date: 20260117
  Serious: Yes (Hospitalization)
  Sender: ALEXION PHARMACEUTICALS
  Company Number: MX-AstraZeneca-CH-01017534A

PATIENT
  Sex: Male
  Weight: 49 kg

DRUGS (1)
  1. OSIMERTINIB [Suspect]
     Active Substance: OSIMERTINIB
     Dosage: UNK, 80 MG, 30 TABLETS.
     Route: 065

REACTIONS (3)
  - General physical health deterioration [Unknown]
  - Neoplasm progression [Unknown]
  - Weight decreased [Unknown]
